FAERS Safety Report 19055980 (Version 1)
Quarter: 2021Q1

REPORT INFORMATION
  Report Type: Spontaneous
  Country: US (occurrence: US)
  Receive Date: 20210324
  Receipt Date: 20210324
  Transmission Date: 20210420
  Serious: Yes (Other)
  Sender: FDA-Public Use
  Company Number: None

PATIENT
  Age: 38 Year
  Sex: Female
  Weight: 81 kg

DRUGS (2)
  1. FERAHEME [Suspect]
     Active Substance: FERUMOXYTOL NON-STOICHIOMETRIC MAGNETITE
     Indication: ANAEMIA
  2. ZOLOFT [Concomitant]
     Active Substance: SERTRALINE HYDROCHLORIDE

REACTIONS (9)
  - Flushing [None]
  - Swelling face [None]
  - Fatigue [None]
  - Visual impairment [None]
  - Infusion related reaction [None]
  - Chest discomfort [None]
  - Dizziness [None]
  - Chills [None]
  - Dyspnoea [None]

NARRATIVE: CASE EVENT DATE: 20210324
